FAERS Safety Report 7146699-0 (Version None)
Quarter: 2010Q4

REPORT INFORMATION
  Report Type: 
  Country: None (occurrence: None)
  Receive Date: 20101208
  Receipt Date: 20101201
  Transmission Date: 20110411
  Serious: Yes (Other)
  Sender: FDA-Public Use
  Company Number: JP-PFIZER INC-2010078011

PATIENT
  Age: 33 Year
  Sex: Female
  Weight: 66 kg

DRUGS (2)
  1. SUNITINIB MALATE [Suspect]
     Indication: GASTROINTESTINAL STROMAL TUMOUR
     Dosage: 50 MG, 1X/DAY
     Route: 048
     Dates: start: 20080813, end: 20091215
  2. ADALAT [Concomitant]
     Dosage: 5 MG, 2X/DAY
     Route: 048
     Dates: start: 20080903

REACTIONS (2)
  - INTRA-ABDOMINAL HAEMORRHAGE [None]
  - WHITE BLOOD CELL COUNT DECREASED [None]
